FAERS Safety Report 6237799-8 (Version None)
Quarter: 2009Q2

REPORT INFORMATION
  Report Type: 
  Country: None (occurrence: None)
  Receive Date: 20090617
  Receipt Date: 20090604
  Transmission Date: 20091009
  Serious: Yes (Other)
  Sender: FDA-Public Use
  Company Number: PAR_03018_2009

PATIENT
  Age: 64 Year
  Sex: Male

DRUGS (3)
  1. CABERGOLINE [Suspect]
     Indication: PROLACTINOMA
     Dosage: 1MG 1X WEEK
  2. CABERGOLINE [Suspect]
     Indication: PROLACTINOMA
     Dosage: 0.5 MG 1X WEEK
     Dates: start: 19990101
  3. LEVOTHYROXINE SODIUM [Concomitant]

REACTIONS (3)
  - CONDITION AGGRAVATED [None]
  - DRUG TOXICITY [None]
  - VISUAL FIELD DEFECT [None]
